FAERS Safety Report 5027131-X (Version None)
Quarter: 2006Q2

REPORT INFORMATION
  Report Type: 
  Country: None (occurrence: None)
  Receive Date: 20060609
  Receipt Date: 20060531
  Transmission Date: 20061013
  Serious: Yes (Hospitalization)
  Sender: FDA-Public Use
  Company Number: 2006BI007844

PATIENT
  Age: 49 Year
  Sex: Female
  Weight: 138.3471 kg

DRUGS (4)
  1. AVONEX [Suspect]
     Indication: MULTIPLE SCLEROSIS
     Dosage: 30 UG; QW; IM
     Route: 030
     Dates: start: 19960101, end: 20030801
  2. AVONEX [Suspect]
     Indication: MULTIPLE SCLEROSIS
     Dosage: 30 UG; QW; IM
     Route: 030
     Dates: start: 20030801, end: 20060422
  3. MULTIPLE MEDICATIONS [Concomitant]
  4. CELEBREX [Concomitant]

REACTIONS (8)
  - AMNESIA [None]
  - ARTHRALGIA [None]
  - BLADDER SPASM [None]
  - COGNITIVE DISORDER [None]
  - FALL [None]
  - HYPOAESTHESIA [None]
  - JOINT DISLOCATION [None]
  - PAIN IN EXTREMITY [None]
